FAERS Safety Report 6885933-9 (Version None)
Quarter: 2010Q3

REPORT INFORMATION
  Report Type: 
  Country: None (occurrence: None)
  Receive Date: 20100729
  Receipt Date: 20090202
  Transmission Date: 20110219
  Serious: No
  Sender: FDA-Public Use
  Company Number: US-PFIZER INC-2009158264

PATIENT
  Age: 75 Year
  Sex: Male

DRUGS (3)
  1. CELEBREX [Suspect]
     Indication: PAIN
  2. TESTOSTERONE [Suspect]
  3. RAMIPRIL [Suspect]

REACTIONS (11)
  - ASTHENIA [None]
  - BLOOD PRESSURE INCREASED [None]
  - FATIGUE [None]
  - FEELING COLD [None]
  - JOINT SWELLING [None]
  - MUSCULOSKELETAL STIFFNESS [None]
  - MYALGIA [None]
  - PRURITUS [None]
  - REACTION TO DRUG EXCIPIENTS [None]
  - TREMOR [None]
  - WEIGHT INCREASED [None]
